FAERS Safety Report 10905574 (Version 1)
Quarter: 2015Q1

REPORT INFORMATION
  Report Type: Spontaneous
  Country: US (occurrence: US)
  Receive Date: 20150311
  Receipt Date: 20150311
  Transmission Date: 20150721
  Serious: Yes (Other)
  Sender: FDA-Public Use
  Company Number: US-BAYER-2015-033791

PATIENT
  Age: 76 Year
  Sex: Male
  Weight: 79.37 kg

DRUGS (10)
  1. NEXAVAR [Suspect]
     Active Substance: SORAFENIB
     Indication: HEPATIC CANCER
     Dosage: 200 MG, BID
     Route: 048
     Dates: start: 20150114
  2. LACTULOSE. [Concomitant]
     Active Substance: LACTULOSE
  3. ASPIRIN. [Concomitant]
     Active Substance: ASPIRIN
  4. MAGNESIUM [Concomitant]
     Active Substance: MAGNESIUM
  5. PRILOSEC [Concomitant]
     Active Substance: OMEPRAZOLE MAGNESIUM
  6. VITAMIN B1 [Concomitant]
     Active Substance: THIAMINE HYDROCHLORIDE
  7. IRON [Concomitant]
     Active Substance: IRON
  8. LASIX [Concomitant]
     Active Substance: FUROSEMIDE
  9. NADOLOL. [Concomitant]
     Active Substance: NADOLOL
  10. SPIRONOLACTONE. [Concomitant]
     Active Substance: SPIRONOLACTONE

REACTIONS (3)
  - Diarrhoea [Recovering/Resolving]
  - Hepatic encephalopathy [Recovering/Resolving]
  - Confusional state [Recovering/Resolving]

NARRATIVE: CASE EVENT DATE: 201501
